FAERS Safety Report 25019691 (Version 4)
Quarter: 2025Q1

REPORT INFORMATION
  Report Type: Spontaneous
  Country: GB (occurrence: GB)
  Receive Date: 20250227
  Receipt Date: 20250326
  Transmission Date: 20250408
  Serious: Yes (Other)
  Sender: DR REDDYS
  Company Number: GB-UKI-GBR/2025/02/002879

PATIENT
  Age: 89 Year
  Sex: Female
  Weight: 71.5 kg

DRUGS (2)
  1. FULVESTRANT [Suspect]
     Active Substance: FULVESTRANT
     Indication: Breast cancer
     Dosage: 4 WEEKLY
     Route: 030
     Dates: start: 20250123, end: 20250123
  2. PALBOCICLIB [Concomitant]
     Active Substance: PALBOCICLIB
     Indication: Product used for unknown indication
     Route: 065

REACTIONS (1)
  - Circumstance or information capable of leading to device use error [Unknown]

NARRATIVE: CASE EVENT DATE: 20250123
